FAERS Safety Report 9492449 (Version 2)
Quarter: 2016Q2

REPORT INFORMATION
  Report Type: Report from Study
  Country: US (occurrence: US)
  Receive Date: 20130830
  Receipt Date: 20160519
  Transmission Date: 20160815
  Serious: Yes (Other)
  Sender: FDA-Public Use
  Company Number: US-ROCHE-1267238

PATIENT
  Sex: Female
  Weight: 61.25 kg

DRUGS (19)
  1. KADCYLA [Suspect]
     Active Substance: ADO-TRASTUZUMAB EMTANSINE
     Indication: INVASIVE DUCTAL BREAST CARCINOMA
     Dosage: DOSES RECEIVED ON: MAY 09, MAY 28,  JUNE 21, JULY 12, AUG 02
     Route: 042
     Dates: start: 20120824, end: 20130228
  2. DEXAMETHASONE. [Concomitant]
     Active Substance: DEXAMETHASONE
     Route: 042
  3. COENZYME Q10 [Concomitant]
     Active Substance: UBIDECARENONE
     Dosage: 2 CAPSULES TWICE A DAY
     Route: 048
  4. VITAMIN B12 [Concomitant]
     Active Substance: CYANOCOBALAMIN
     Dosage: 1000MCG AS DIRECTED DAILY
     Route: 048
  5. ZOLEDRONIC ACID [Concomitant]
     Active Substance: ZOLEDRONIC ACID
     Route: 042
  6. VITAMIN C [Concomitant]
     Active Substance: ASCORBIC ACID
     Route: 048
  7. ALPHA LIPOIC ACID [Concomitant]
     Active Substance: .ALPHA.-LIPOIC ACID
     Dosage: AS DIRECTED DAILY
     Route: 048
  8. PERJETA [Suspect]
     Active Substance: PERTUZUMAB
     Indication: BREAST CANCER
     Dosage: DOSES RECEIVED ON : JAN 18, FEB 08, FEB 28, MARCH 27, APRIL 17, AUG 22, OCT 26, NOV 16, DEC 07, DEC
     Route: 042
     Dates: start: 20120824, end: 20130228
  9. PERJETA [Suspect]
     Active Substance: PERTUZUMAB
     Indication: METASTASES TO BONE MARROW
  10. ONDANSETRON [Concomitant]
     Active Substance: ONDANSETRON
  11. KADCYLA [Suspect]
     Active Substance: ADO-TRASTUZUMAB EMTANSINE
     Dosage: RECEIVED JAN 30, JAN 2, DEC 5, NOV 7, OCT 10
     Route: 042
  12. ANASTROZOLE. [Concomitant]
     Active Substance: ANASTROZOLE
     Dosage: 30 DAYS 30 TABLETS REFILL 11
     Route: 048
  13. CURCUMIN [Concomitant]
     Active Substance: CURCUMIN
     Route: 065
  14. PERJETA [Suspect]
     Active Substance: PERTUZUMAB
     Indication: BONE CANCER
     Route: 042
  15. TAXOTERE [Concomitant]
     Active Substance: DOCETAXEL
     Route: 065
     Dates: start: 20120824, end: 20130228
  16. FISH OIL [Concomitant]
     Active Substance: FISH OIL
     Route: 065
  17. KADCYLA [Suspect]
     Active Substance: ADO-TRASTUZUMAB EMTANSINE
     Dosage: SEP 12, AUG 22, APRIL 17, MARCH 27, FEB 28, FEB 08
     Route: 042
  18. HERCEPTIN [Suspect]
     Active Substance: TRASTUZUMAB
     Indication: INVASIVE DUCTAL BREAST CARCINOMA
     Dosage: OSES RECEIVED ON: JAN 2, JAN 18, JAN 30, FEB 08, FEB 28, MARCH 27, APRIL 17, AUG 22, SEP 12,  OCT 10
     Route: 065
     Dates: start: 20120824, end: 20130228
  19. TRAMADOL HCL [Concomitant]
     Active Substance: TRAMADOL HYDROCHLORIDE
     Indication: PAIN
     Dosage: 1 TO 2  SOLUBLE TABLETS AS NEEDED FOR PAIN EVERY 4 HOURS
     Route: 048

REACTIONS (19)
  - Neuropathy peripheral [Unknown]
  - Disease progression [Unknown]
  - Lymph node palpable [Unknown]
  - Erythema [Unknown]
  - Tenderness [Unknown]
  - Fatigue [Unknown]
  - Dyspnoea [Unknown]
  - Metastasis [Unknown]
  - Aspartate aminotransferase increased [Unknown]
  - Monocyte count decreased [Not Recovered/Not Resolved]
  - Mean platelet volume decreased [Unknown]
  - Exercise tolerance decreased [Unknown]
  - Stress [Unknown]
  - Feeling abnormal [Unknown]
  - Skin hypertrophy [Unknown]
  - Lymphocyte count decreased [Unknown]
  - Irritability [Unknown]
  - Swelling [Unknown]
  - Asthenia [Unknown]
